FAERS Safety Report 9677464 (Version 1)
Quarter: 2013Q4

REPORT INFORMATION
  Report Type: Spontaneous
  Country: US (occurrence: US)
  Receive Date: 20131108
  Receipt Date: 20131108
  Transmission Date: 20140711
  Serious: Yes (Other)
  Sender: FDA-Public Use
  Company Number: PHEH2013US023250

PATIENT
  Sex: Male

DRUGS (10)
  1. ZOMETA [Suspect]
     Dosage: UNK UKN, UNK
     Dates: start: 20111109, end: 20120919
  2. PREDNISONE [Concomitant]
  3. HYDROCHLOROTHIAZIDE [Concomitant]
  4. OMEPRAZOLE [Concomitant]
  5. CLONAZEPAM [Concomitant]
  6. ZOLPIDEM TARTRATE [Concomitant]
  7. FLUXOTINE [Concomitant]
  8. ELIGARD [Concomitant]
  9. DOCETAXEL [Concomitant]
  10. PSYLLIUM [Concomitant]

REACTIONS (2)
  - Osteonecrosis [Unknown]
  - Metastatic neoplasm [Unknown]
